FAERS Safety Report 8093403 (Version 4)
Quarter: 2013Q1

REPORT INFORMATION
  Report Type: Report from Study
  Country: AT (occurrence: AT)
  Receive Date: 20110817
  Receipt Date: 20130215
  Transmission Date: 20140127
  Serious: Yes (Death, Hospitalization)
  Sender: FDA-Public Use
  Company Number: AT-JNJFOC-20110800360

PATIENT
  Age: 63 Year
  Sex: Male
  Weight: 86 kg

DRUGS (6)
  1. ABIRATERONE [Suspect]
     Route: 048
  2. ABIRATERONE [Suspect]
     Indication: PROSTATE CANCER METASTATIC
     Route: 048
     Dates: start: 20110601, end: 20110629
  3. PREDNISONE [Concomitant]
     Indication: PROSTATE CANCER METASTATIC
     Route: 048
     Dates: start: 201106
  4. IBANDRONATE [Concomitant]
     Indication: METASTASES TO BONE
     Route: 042
     Dates: start: 200912
  5. PANTOPRAZOL [Concomitant]
     Indication: PROPHYLAXIS
     Route: 048
     Dates: start: 201105
  6. DEGARELIX [Concomitant]
     Indication: PROSTATE CANCER
     Route: 058
     Dates: start: 201104

REACTIONS (5)
  - Renal failure acute [Fatal]
  - Hepatic failure [Fatal]
  - Thrombocytopenia [Fatal]
  - Anaemia [Fatal]
  - Hyperbilirubinaemia [Unknown]
